FAERS Safety Report 7510825-1 (Version None)
Quarter: 2011Q2

REPORT INFORMATION
  Report Type: 
  Country: None (occurrence: None)
  Receive Date: 20110531
  Receipt Date: 20110519
  Transmission Date: 20111010
  Serious: No
  Sender: FDA-Public Use
  Company Number: US-BIOGENIDEC-2010BI040935

PATIENT
  Sex: Male

DRUGS (1)
  1. TYSABRI [Suspect]
     Indication: MULTIPLE SCLEROSIS
     Route: 042
     Dates: start: 20100310

REACTIONS (4)
  - PAIN [None]
  - FATIGUE [None]
  - BLOOD PRESSURE INCREASED [None]
  - ASTHENIA [None]
